FAERS Safety Report 4274507-4 (Version None)
Quarter: 2004Q1

REPORT INFORMATION
  Report Type: 
  Country: None (occurrence: None)
  Receive Date: 20040115
  Receipt Date: 20040107
  Transmission Date: 20041129
  Serious: Yes (Death, Other)
  Sender: FDA-Public Use
  Company Number: 2004-01-0160

PATIENT
  Age: 70 Year
  Sex: Male

DRUGS (3)
  1. FLUTAMIDE [Suspect]
     Indication: PROSTATE CANCER
     Dosage: ORAL
     Route: 048
  2. CHLORMADINONE ACETATE TAB [Suspect]
     Indication: PROSTATE CANCER
     Dosage: ORAL
     Route: 048
  3. LEUPRORELIN ACETATE INJECTABLE [Suspect]
     Indication: PROSTATE CANCER

REACTIONS (4)
  - BENIGN PROSTATIC HYPERPLASIA [None]
  - MALIGNANT NEOPLASM PROGRESSION [None]
  - NEURON-SPECIFIC ENOLASE INCREASED [None]
  - SMALL CELL CARCINOMA [None]
